FAERS Safety Report 19651079 (Version 2)
Quarter: 2021Q3

REPORT INFORMATION
  Report Type: Spontaneous
  Country: US (occurrence: US)
  Receive Date: 20210803
  Receipt Date: 20210830
  Transmission Date: 20211014
  Serious: Yes (Other)
  Sender: FDA-Public Use
  Company Number: US-GLAXOSMITHKLINE-US2021163849

PATIENT
  Age: 42 Year
  Sex: Female

DRUGS (1)
  1. VENTOLIN HFA [Suspect]
     Active Substance: ALBUTEROL SULFATE
     Indication: PRODUCT USED FOR UNKNOWN INDICATION
     Dosage: 90 MCG/MG

REACTIONS (5)
  - Vomiting [Unknown]
  - Chest discomfort [Unknown]
  - Foreign body in throat [Unknown]
  - Cough [Unknown]
  - Product complaint [Unknown]

NARRATIVE: CASE EVENT DATE: 2021
